FAERS Safety Report 17754245 (Version 2)
Quarter: 2020Q3

REPORT INFORMATION
  Report Type: Report from Study
  Country: US (occurrence: US)
  Receive Date: 20200506
  Receipt Date: 20200803
  Transmission Date: 20201102
  Serious: No
  Sender: FDA-Public Use
  Company Number: US-JNJFOC-20200435623

PATIENT
  Age: 23 Year
  Sex: Female
  Weight: 59.02 kg

DRUGS (4)
  1. SPRAVATO [Suspect]
     Active Substance: ESKETAMINE
     Indication: DEPRESSION
     Dates: start: 20200409
  2. ABILIFY [Concomitant]
     Active Substance: ARIPIPRAZOLE
  3. SPRAVATO [Suspect]
     Active Substance: ESKETAMINE
     Dates: start: 20200427, end: 20200427
  4. WELLBUTRIN [Concomitant]
     Active Substance: BUPROPION HYDROCHLORIDE
     Dosage: SR

REACTIONS (2)
  - Dizziness [Recovered/Resolved]
  - Sedation [Recovered/Resolved]

NARRATIVE: CASE EVENT DATE: 20200427
